FAERS Safety Report 9191268 (Version 1)
Quarter: 2013Q1

REPORT INFORMATION
  Report Type: Spontaneous
  Country: US (occurrence: US)
  Receive Date: 20130326
  Receipt Date: 20130326
  Transmission Date: 20140127
  Serious: No
  Sender: FDA-Public Use
  Company Number: US-PFIZER INC-2013095035

PATIENT
  Sex: Female

DRUGS (2)
  1. LYRICA [Suspect]
     Indication: FIBROMYALGIA
     Dosage: 75 MG, UNK
  2. LYRICA [Suspect]
     Dosage: 50 MG IN THE MORNING AND TWO 50 MG CAPSULES AT NIGHT

REACTIONS (6)
  - Euphoric mood [Unknown]
  - Vision blurred [Unknown]
  - Somnolence [Unknown]
  - Sedation [Unknown]
  - Drug effect incomplete [Unknown]
  - Pain [Unknown]
